FAERS Safety Report 25226586 (Version 1)
Quarter: 2025Q2

REPORT INFORMATION
  Report Type: Spontaneous
  Country: BR (occurrence: BR)
  Receive Date: 20250422
  Receipt Date: 20250422
  Transmission Date: 20250717
  Serious: Yes (Other)
  Sender: ANI
  Company Number: BR-ANIPHARMA-2025-BR-000017

PATIENT
  Sex: Female

DRUGS (3)
  1. ARIMIDEX [Suspect]
     Active Substance: ANASTROZOLE
     Indication: Product used for unknown indication
  2. FASLODEX [Suspect]
     Active Substance: FULVESTRANT
  3. DEVICE [Suspect]
     Active Substance: DEVICE

REACTIONS (4)
  - Venous thrombosis [Unknown]
  - Suicidal behaviour [Unknown]
  - Cluster headache [Unknown]
  - Nervousness [Unknown]
